FAERS Safety Report 14890502 (Version 1)
Quarter: 2018Q2

REPORT INFORMATION
  Report Type: Spontaneous
  Country: US (occurrence: US)
  Receive Date: 20180426
  Receipt Date: 20180426
  Transmission Date: 20180711
  Serious: Yes (Hospitalization)
  Sender: FDA-Public Use
  Company Number: None

PATIENT
  Age: 60 Year
  Sex: Male
  Weight: 86.18 kg

DRUGS (2)
  1. SULFAMETHIZOLE/TRIMETHOPRIM [Suspect]
     Active Substance: SULFAMETHOXAZOLE\TRIMETHOPRIM
     Indication: STILL^S DISEASE
     Dates: start: 20180226, end: 20180404
  2. ANAKINRA [Suspect]
     Active Substance: ANAKINRA
     Indication: STILL^S DISEASE
     Dates: start: 20180222

REACTIONS (8)
  - Rash [None]
  - Stevens-Johnson syndrome [None]
  - Pruritus [None]
  - Urticaria [None]
  - Rash pruritic [None]
  - Drug eruption [None]
  - Dysphonia [None]
  - Angioedema [None]

NARRATIVE: CASE EVENT DATE: 20180406
